FAERS Safety Report 5445202-0 (Version None)
Quarter: 2007Q3

REPORT INFORMATION
  Report Type: 
  Country: None (occurrence: None)
  Receive Date: 20070730
  Receipt Date: 20070426
  Transmission Date: 20080115
  Serious: Yes (Other)
  Sender: FDA-Public Use
  Company Number: 240678

PATIENT
  Age: 64 Year
  Sex: Female
  Weight: 86.2 kg

DRUGS (4)
  1. RITUXAN [Suspect]
     Indication: RHEUMATOID ARTHRITIS
     Dates: start: 20061107
  2. PREDNISONE TAB [Suspect]
     Indication: RHEUMATOID ARTHRITIS
     Dates: start: 20061121
  3. METHOTREXATE [Concomitant]
  4. TYLENOL (CAPLET) [Suspect]
     Indication: RHEUMATOID ARTHRITIS
     Dates: start: 20061121

REACTIONS (1)
  - HYPERSENSITIVITY [None]
